FAERS Safety Report 6067578-6 (Version None)
Quarter: 2009Q1

REPORT INFORMATION
  Report Type: 
  Country: None (occurrence: None)
  Receive Date: 20090202
  Receipt Date: 20090122
  Transmission Date: 20090719
  Serious: Yes (Hospitalization)
  Sender: FDA-Public Use
  Company Number: 2009AP000338

PATIENT
  Age: 70 Year
  Sex: Female

DRUGS (4)
  1. GABAPENTIN [Suspect]
     Indication: ARTHRALGIA
     Dosage: 300 MG; BID; PO
     Route: 048
     Dates: end: 20090121
  2. GABAPENTIN [Suspect]
     Indication: BACK PAIN
     Dosage: 300 MG; BID; PO
     Route: 048
     Dates: end: 20090121
  3. LISINOPRIL [Concomitant]
  4. CYCLOBENZAPRINE [Concomitant]

REACTIONS (1)
  - HYPERSENSITIVITY [None]
